FAERS Safety Report 7328282-7 (Version None)
Quarter: 2011Q1

REPORT INFORMATION
  Report Type: 
  Country: None (occurrence: None)
  Receive Date: 20110224
  Receipt Date: 20110224
  Transmission Date: 20110831
  Serious: Yes (Hospitalization)
  Sender: FDA-Public Use
  Company Number: None

PATIENT
  Sex: Female

DRUGS (1)
  1. LUPRON DEPOT [Suspect]
     Dosage: 3.75 MG MONTHLY INTRAMUSCULARLY
     Route: 030
     Dates: start: 20101109

REACTIONS (3)
  - BLOOD POTASSIUM INCREASED [None]
  - HEART RATE INCREASED [None]
  - INJECTION SITE PAIN [None]
